FAERS Safety Report 17979026 (Version 4)
Quarter: 2020Q3

REPORT INFORMATION
  Report Type: Spontaneous
  Country: US (occurrence: US)
  Receive Date: 20200703
  Receipt Date: 20200916
  Transmission Date: 20201103
  Serious: Yes (Death, Life-Threatening, Other)
  Sender: FDA-Public Use
  Company Number: NVSC2020US187205

PATIENT
  Age: 21 Year
  Sex: Male
  Weight: 91 kg

DRUGS (108)
  1. TOCILIZUMAB. [Concomitant]
     Active Substance: TOCILIZUMAB
     Indication: PRODUCT USED FOR UNKNOWN INDICATION
     Dosage: 760 MG, QD
     Route: 042
     Dates: start: 20200601, end: 20200601
  2. CALCIUM GLUCONATE. [Concomitant]
     Active Substance: CALCIUM GLUCONATE
     Dosage: 2 G, QD
     Route: 048
     Dates: start: 20200603, end: 20200603
  3. FENTANYL CITRATE. [Concomitant]
     Active Substance: FENTANYL CITRATE
     Indication: PRODUCT USED FOR UNKNOWN INDICATION
     Dosage: 100 MG, QD
     Route: 042
  4. MEROPENEM. [Concomitant]
     Active Substance: MEROPENEM
     Dosage: 1 G, QD
     Route: 041
     Dates: start: 20200531, end: 20200531
  5. INSULIN LISPRO [Concomitant]
     Active Substance: INSULIN LISPRO
     Indication: HYPERKALAEMIA
     Dosage: UNK UNK, QD (5 UNIT)
     Route: 042
     Dates: start: 20200604, end: 20200604
  6. SODIUM PHOSPHATE [Concomitant]
     Active Substance: SODIUM PHOSPHATE
     Indication: PRODUCT USED FOR UNKNOWN INDICATION
     Dosage: 1 DF, Q6H
     Route: 048
     Dates: start: 20200531, end: 20200601
  7. ROCURONIUM [Concomitant]
     Active Substance: ROCURONIUM BROMIDE
     Indication: PRODUCT USED FOR UNKNOWN INDICATION
     Dosage: 100 MG, QD
     Route: 042
     Dates: start: 20200604, end: 20200604
  8. ETOMIDATE. [Concomitant]
     Active Substance: ETOMIDATE
     Indication: PRODUCT USED FOR UNKNOWN INDICATION
     Dosage: 20 MG, QD
     Route: 042
     Dates: start: 20200604, end: 20200604
  9. BUMETANIDE. [Concomitant]
     Active Substance: BUMETANIDE
     Indication: PRODUCT USED FOR UNKNOWN INDICATION
     Dosage: 4 MG, QD
     Route: 042
     Dates: start: 20200604, end: 20200604
  10. FUROSEMIDE. [Concomitant]
     Active Substance: FUROSEMIDE
     Dosage: 40 MG, QD
     Route: 042
     Dates: start: 20200604, end: 20200604
  11. POTASSIUM CHLORIDE. [Concomitant]
     Active Substance: POTASSIUM CHLORIDE
     Dosage: 30 MEQ, QD
     Route: 048
     Dates: start: 20200529, end: 20200529
  12. HUMAN ALBUMIN [Concomitant]
     Active Substance: ALBUMIN HUMAN
     Indication: PRODUCT USED FOR UNKNOWN INDICATION
     Dosage: 50 ML
     Route: 042
     Dates: start: 20200601, end: 20200601
  13. SUCRALFATE. [Concomitant]
     Active Substance: SUCRALFATE
     Indication: PRODUCT USED FOR UNKNOWN INDICATION
     Dosage: 1000 MG, Q6H
     Route: 048
     Dates: start: 20200523, end: 20200603
  14. LIDOCAINE. [Concomitant]
     Active Substance: LIDOCAINE
     Indication: PRODUCT USED FOR UNKNOWN INDICATION
     Dosage: 15 ML, Q6H
     Route: 049
     Dates: start: 20200523, end: 20200524
  15. MIDODRINE [Concomitant]
     Active Substance: MIDODRINE
     Indication: PRODUCT USED FOR UNKNOWN INDICATION
     Dosage: 10 MG, Q12H
     Route: 048
     Dates: start: 20200603
  16. BIOTENE NOS [Concomitant]
     Active Substance: CETYLPYRIDINIUM CHLORIDE OR SODIUM FLUORIDE OR SODIUM MONOFLUOROPHOSPHATE OR GLUCOSE OXIDASE\LACTOFERRIN\LACTOPEROXIDASE BOVINE\LYSOZYME
     Indication: PRODUCT USED FOR UNKNOWN INDICATION
     Dosage: 15 ML, Q6H
     Route: 049
     Dates: start: 20200523
  17. DEXTROSE. [Concomitant]
     Active Substance: DEXTROSE
     Dosage: 25 G (Q15MIN) (STRENGTH: 50%)
     Route: 042
     Dates: start: 20200604, end: 20200604
  18. NORMAL SALINE [Concomitant]
     Active Substance: SODIUM CHLORIDE
     Indication: PRODUCT USED FOR UNKNOWN INDICATION
     Dosage: 1000 ML, QD
     Route: 040
     Dates: start: 20200525, end: 20200601
  19. NORMAL SALINE [Concomitant]
     Active Substance: SODIUM CHLORIDE
     Dosage: 500 ML, QD
     Route: 040
     Dates: start: 20200530, end: 20200530
  20. MEROPENEM. [Concomitant]
     Active Substance: MEROPENEM
     Indication: PRODUCT USED FOR UNKNOWN INDICATION
     Dosage: 1000 MG
     Route: 041
     Dates: start: 20200530, end: 20200530
  21. MEROPENEM. [Concomitant]
     Active Substance: MEROPENEM
     Dosage: 1 G, Q12H
     Route: 042
     Dates: start: 20200604, end: 20200604
  22. PROPOFOL. [Concomitant]
     Active Substance: PROPOFOL
     Indication: PRODUCT USED FOR UNKNOWN INDICATION
     Dosage: 5 UG
     Route: 041
     Dates: start: 20200604
  23. SODIUM CHLORIDE. [Concomitant]
     Active Substance: SODIUM CHLORIDE
     Indication: PRODUCT USED FOR UNKNOWN INDICATION
     Dosage: 1 OT, Q6H
     Route: 065
     Dates: start: 20200602
  24. NOREPINEPHRINE. [Concomitant]
     Active Substance: NOREPINEPHRINE
     Indication: PRODUCT USED FOR UNKNOWN INDICATION
     Dosage: UNK
     Route: 065
     Dates: start: 20200603
  25. POTASSIUM CHLORIDE. [Concomitant]
     Active Substance: POTASSIUM CHLORIDE
     Indication: PRODUCT USED FOR UNKNOWN INDICATION
     Dosage: 20 MEQ, QD
     Route: 048
     Dates: start: 20200526, end: 20200526
  26. ACETAMINOPHEN. [Concomitant]
     Active Substance: ACETAMINOPHEN
     Dosage: 650 MG, QD
     Route: 048
     Dates: start: 20200530, end: 20200530
  27. MIDODRINE [Concomitant]
     Active Substance: MIDODRINE
     Dosage: 10 MG, Q8H
     Route: 048
     Dates: start: 20200603, end: 20200603
  28. LEVETIRACETAM. [Concomitant]
     Active Substance: LEVETIRACETAM
     Indication: PRODUCT USED FOR UNKNOWN INDICATION
     Dosage: 500 MG, Q12H
     Route: 042
  29. VASOPRESSIN. [Concomitant]
     Active Substance: VASOPRESSIN
     Dosage: 2.4 OT
     Route: 041
     Dates: start: 20200604
  30. DEXTROSE. [Concomitant]
     Active Substance: DEXTROSE
     Dosage: 1000 ML (STRENGTH 10%)
     Route: 042
     Dates: start: 20200604
  31. FENTANYL CITRATE. [Concomitant]
     Active Substance: FENTANYL CITRATE
     Dosage: 200 UG, QD
     Route: 042
     Dates: start: 20200604, end: 20200604
  32. NORMAL SALINE [Concomitant]
     Active Substance: SODIUM CHLORIDE
     Dosage: 1000 ML, QD
     Route: 040
     Dates: start: 20200601, end: 20200601
  33. HUMULIN R [Concomitant]
     Active Substance: INSULIN HUMAN
     Indication: PRODUCT USED FOR UNKNOWN INDICATION
     Dosage: 10 OT, QD
     Route: 042
     Dates: start: 20200604, end: 20200604
  34. LORAZEPAM. [Concomitant]
     Active Substance: LORAZEPAM
     Indication: PRODUCT USED FOR UNKNOWN INDICATION
     Dosage: 1 MG, Q24H
     Route: 048
     Dates: start: 20200525, end: 20200531
  35. LORAZEPAM. [Concomitant]
     Active Substance: LORAZEPAM
     Dosage: 2 MG, Q24H
     Route: 048
     Dates: start: 20200531, end: 20200531
  36. POTASSIUM CHLORIDE. [Concomitant]
     Active Substance: POTASSIUM CHLORIDE
     Dosage: 60 OT, QD (LIQ)
     Route: 048
     Dates: start: 20200603, end: 20200603
  37. VANCOMYCIN [Concomitant]
     Active Substance: VANCOMYCIN
     Indication: PRODUCT USED FOR UNKNOWN INDICATION
     Dosage: 1500 MG, Q8H
     Route: 042
     Dates: start: 20200601, end: 20200601
  38. VANCOMYCIN [Concomitant]
     Active Substance: VANCOMYCIN
     Dosage: 1500 MG, Q8H
     Route: 042
     Dates: start: 20200602, end: 20200602
  39. MAGNESIUM [Concomitant]
     Active Substance: MAGNESIUM
     Dosage: 4 G, QD
     Route: 042
     Dates: start: 20200531, end: 20200531
  40. LOPERAMIDE [Concomitant]
     Active Substance: LOPERAMIDE
     Dosage: 2 MG, Q4H
     Route: 048
     Dates: start: 20200601, end: 20200601
  41. SILTUXIMAB [Concomitant]
     Active Substance: SILTUXIMAB
     Indication: PRODUCT USED FOR UNKNOWN INDICATION
     Dosage: 1100 MG, QD
     Route: 042
  42. METHYLPREDNISOLONE SODIUM SUCCINATE. [Concomitant]
     Active Substance: METHYLPREDNISOLONE SODIUM SUCCINATE
     Indication: PRODUCT USED FOR UNKNOWN INDICATION
     Dosage: 1000 MG, Q24H
     Route: 042
  43. POSACONAZOLE [Concomitant]
     Active Substance: POSACONAZOLE
     Dosage: 300 MG, QD
     Route: 042
     Dates: start: 20200603, end: 20200603
  44. DEXTROSE. [Concomitant]
     Active Substance: DEXTROSE
     Indication: PRODUCT USED FOR UNKNOWN INDICATION
     Dosage: 1000 MG (STRENGTH: 10%)
     Route: 042
  45. CALCIUM GLUCONATE. [Concomitant]
     Active Substance: CALCIUM GLUCONATE
     Dosage: 1 G, QD
     Route: 042
     Dates: start: 20200603, end: 20200604
  46. FENTANYL CITRATE. [Concomitant]
     Active Substance: FENTANYL CITRATE
     Dosage: 100 UG (Q2MIN)
     Route: 042
     Dates: start: 20200604, end: 20200604
  47. NORMAL SALINE [Concomitant]
     Active Substance: SODIUM CHLORIDE
     Dosage: 1000 ML, QD
     Route: 040
     Dates: start: 20200527, end: 20200628
  48. NORMAL SALINE [Concomitant]
     Active Substance: SODIUM CHLORIDE
     Dosage: 500 ML, QD
     Route: 040
     Dates: start: 20200601, end: 20200601
  49. NORMAL SALINE [Concomitant]
     Active Substance: SODIUM CHLORIDE
     Dosage: 1000 ML, QD
     Route: 040
     Dates: start: 20200602, end: 20200602
  50. MEROPENEM. [Concomitant]
     Active Substance: MEROPENEM
     Dosage: 1 G, Q8H (EXTENDED INFUSION)
     Route: 042
  51. HYDROCORTISONE SODIUM SUCCINATE [Concomitant]
     Active Substance: HYDROCORTISONE SODIUM SUCCINATE
     Indication: PRODUCT USED FOR UNKNOWN INDICATION
     Dosage: 50 MG, Q6H
     Route: 042
     Dates: start: 20200604
  52. HYDROCORTISONE SODIUM SUCCINATE [Concomitant]
     Active Substance: HYDROCORTISONE SODIUM SUCCINATE
     Dosage: 100 MG, QD
     Route: 042
     Dates: start: 20200604, end: 20200604
  53. PROCHLORAZINE [Concomitant]
     Dosage: 5 MG, Q6H
     Route: 042
     Dates: start: 20200531
  54. POTASSIUM CHLORIDE. [Concomitant]
     Active Substance: POTASSIUM CHLORIDE
     Dosage: 60 OT, QD (LIQ)
     Route: 048
     Dates: start: 20200603, end: 20200603
  55. PIPERACILINA + TAZOBACTAM [Concomitant]
     Active Substance: PIPERACILLIN SODIUM\TAZOBACTAM SODIUM
     Indication: PRODUCT USED FOR UNKNOWN INDICATION
     Dosage: 4500 MG, Q6H
     Route: 042
     Dates: start: 20200522, end: 20200530
  56. ACETAMINOPHEN. [Concomitant]
     Active Substance: ACETAMINOPHEN
     Dosage: 650 MG, QD
     Route: 048
     Dates: start: 20200531, end: 20200531
  57. FLUDARABINE [Concomitant]
     Active Substance: FLUDARABINE PHOSPHATE
     Indication: CHEMOTHERAPY
     Dosage: UNK
     Route: 065
  58. DEXTROSE. [Concomitant]
     Active Substance: DEXTROSE
     Dosage: 50 G, QD (STRENGTH: 50%)
     Route: 042
  59. DEXTROSE. [Concomitant]
     Active Substance: DEXTROSE
     Dosage: 50 G, QD (STRENGTH: 50%)
     Route: 042
     Dates: start: 20200604, end: 20200604
  60. CALCIUM GLUCONATE. [Concomitant]
     Active Substance: CALCIUM GLUCONATE
     Dosage: 1 G, QD
     Route: 065
  61. MEROPENEM. [Concomitant]
     Active Substance: MEROPENEM
     Dosage: 1 G, QD
     Route: 041
     Dates: start: 20200531, end: 20200604
  62. ATROPINE. [Concomitant]
     Active Substance: ATROPINE
     Indication: PRODUCT USED FOR UNKNOWN INDICATION
     Dosage: 2 DF, QD
     Route: 048
     Dates: start: 20200601, end: 20200603
  63. ATROPINE. [Concomitant]
     Active Substance: ATROPINE
     Dosage: 2 DF, Q12H
     Route: 048
     Dates: start: 20200603, end: 20200604
  64. MIDAZOLAM HYDROCHLORIDE. [Concomitant]
     Active Substance: MIDAZOLAM HYDROCHLORIDE
     Indication: PRODUCT USED FOR UNKNOWN INDICATION
     Dosage: 2 MG (Q2MIN)
     Route: 042
     Dates: start: 20200604, end: 20200604
  65. FUROSEMIDE. [Concomitant]
     Active Substance: FUROSEMIDE
     Indication: PRODUCT USED FOR UNKNOWN INDICATION
     Dosage: 10 MG, QD
     Route: 042
     Dates: start: 20200603, end: 20200604
  66. PROCHLORAZINE [Concomitant]
     Indication: PRODUCT USED FOR UNKNOWN INDICATION
     Dosage: 10 MG, Q6H
     Route: 042
     Dates: start: 20200530, end: 20200530
  67. POTASSIUM CHLORIDE. [Concomitant]
     Active Substance: POTASSIUM CHLORIDE
     Dosage: 30 MEQ, QD
     Route: 048
     Dates: start: 20200527, end: 20200527
  68. OXYMETAZOLINE [Concomitant]
     Active Substance: OXYMETAZOLINE
     Indication: PRODUCT USED FOR UNKNOWN INDICATION
     Dosage: 1 OT, Q12H
     Route: 045
     Dates: start: 20200602, end: 20200602
  69. MAGNESIUM [Concomitant]
     Active Substance: MAGNESIUM
     Dosage: 2 G, QD
     Route: 042
     Dates: start: 20200527, end: 20200527
  70. LIDOCAINE. [Concomitant]
     Active Substance: LIDOCAINE
     Dosage: 15 ML, Q6H
     Route: 049
     Dates: start: 20200524, end: 20200525
  71. TOCILIZUMAB. [Concomitant]
     Active Substance: TOCILIZUMAB
     Dosage: 800 MG, QD
     Route: 042
     Dates: start: 20200603, end: 20200603
  72. KYMRIAH [Suspect]
     Active Substance: TISAGENLECLEUCEL
     Indication: ACUTE LYMPHOCYTIC LEUKAEMIA
     Dosage: UNK (1.6E8 CAR?POSITIVE VIABLE T?CELLS)
     Route: 042
     Dates: start: 20200522
  73. CYTOXAN [Concomitant]
     Active Substance: CYCLOPHOSPHAMIDE
     Indication: CHEMOTHERAPY
     Dosage: UNK
     Route: 065
  74. LEVETIRACETAM. [Concomitant]
     Active Substance: LEVETIRACETAM
     Dosage: 500 MG, BID
     Route: 042
     Dates: start: 20200506
  75. PANTOPRAZOLE [Concomitant]
     Active Substance: PANTOPRAZOLE
     Indication: PRODUCT USED FOR UNKNOWN INDICATION
     Dosage: 40 MG, Q24H
     Route: 042
  76. DEXTROSE. [Concomitant]
     Active Substance: DEXTROSE
     Dosage: 25 G, QD (STRENGTH: 50%)
     Route: 042
  77. CALCIUM GLUCONATE. [Concomitant]
     Active Substance: CALCIUM GLUCONATE
     Indication: PRODUCT USED FOR UNKNOWN INDICATION
     Dosage: 2 G, QD
     Route: 042
  78. PHENYLEPHRINE [Concomitant]
     Active Substance: PHENYLEPHRINE HYDROCHLORIDE
     Indication: PRODUCT USED FOR UNKNOWN INDICATION
     Dosage: 40 UG
     Route: 041
     Dates: start: 20200604
  79. FAMOTIDINE. [Concomitant]
     Active Substance: FAMOTIDINE
     Indication: PRODUCT USED FOR UNKNOWN INDICATION
     Dosage: 20 MG, Q48H
     Route: 048
     Dates: start: 20200604
  80. VANCOMYCIN [Concomitant]
     Active Substance: VANCOMYCIN
     Dosage: 1000 MG, Q8H
     Route: 042
     Dates: start: 20200604, end: 20200604
  81. LOPERAMIDE [Concomitant]
     Active Substance: LOPERAMIDE
     Indication: PRODUCT USED FOR UNKNOWN INDICATION
     Dosage: 2 MG, Q12H
     Route: 048
     Dates: start: 20200531, end: 20200601
  82. BENZOCAINE. [Concomitant]
     Active Substance: BENZOCAINE
     Indication: PRODUCT USED FOR UNKNOWN INDICATION
     Dosage: 1 DF, Q2H
     Route: 048
     Dates: start: 20200525
  83. DIFENHYDRAMIN [Concomitant]
     Indication: PRODUCT USED FOR UNKNOWN INDICATION
     Dosage: 50 MG, QD
     Route: 048
     Dates: start: 20200522, end: 20200522
  84. METRONIDAZOLE. [Concomitant]
     Active Substance: METRONIDAZOLE
     Indication: PRODUCT USED FOR UNKNOWN INDICATION
     Dosage: 500 MG, Q8H
     Route: 042
  85. METRONIDAZOLE. [Concomitant]
     Active Substance: METRONIDAZOLE
     Dosage: 500 MG, Q8H
     Route: 042
     Dates: start: 20200604
  86. DEXTROSE. [Concomitant]
     Active Substance: DEXTROSE
     Dosage: 25 G (STRENGTH: 50%)
     Route: 042
     Dates: start: 20200604, end: 20200604
  87. CALCIUM GLUCONATE. [Concomitant]
     Active Substance: CALCIUM GLUCONATE
     Dosage: 2 G, QD
     Route: 042
     Dates: start: 20200604, end: 20200604
  88. NORMAL SALINE [Concomitant]
     Active Substance: SODIUM CHLORIDE
     Dosage: 500 ML, QD
     Route: 040
     Dates: start: 20200604, end: 20200604
  89. SODIUM PHOSPHATE [Concomitant]
     Active Substance: SODIUM PHOSPHATE
     Dosage: 1 DF, QD
     Route: 048
     Dates: start: 20200603, end: 20200603
  90. POTASSIUM CHLORIDE. [Concomitant]
     Active Substance: POTASSIUM CHLORIDE
     Dosage: 40 MEQ, QD
     Route: 048
     Dates: start: 20200530, end: 20200530
  91. BENEFIBER [Concomitant]
     Active Substance: STARCH, WHEAT
     Indication: PRODUCT USED FOR UNKNOWN INDICATION
     Dosage: 1 DF
     Route: 048
     Dates: start: 20200525, end: 20200530
  92. MAGNESIUM [Concomitant]
     Active Substance: MAGNESIUM
     Dosage: 2 OT, QD
     Route: 042
     Dates: start: 20200603, end: 20200603
  93. LOPERAMIDE [Concomitant]
     Active Substance: LOPERAMIDE
     Dosage: 2 MG, Q24H
     Route: 048
     Dates: start: 20200531, end: 20200601
  94. ACETAMINOPHEN. [Concomitant]
     Active Substance: ACETAMINOPHEN
     Indication: PRODUCT USED FOR UNKNOWN INDICATION
     Dosage: 650 MG, QD
     Route: 048
     Dates: start: 20200527
  95. POTASSIUM PHOSPHATE [Concomitant]
     Active Substance: POTASSIUM PHOSPHATE
     Indication: PRODUCT USED FOR UNKNOWN INDICATION
     Dosage: 15 MMOL, QD
     Route: 042
     Dates: start: 20200528, end: 20200528
  96. TOCILIZUMAB. [Concomitant]
     Active Substance: TOCILIZUMAB
     Dosage: 800 MG, QD
     Route: 042
     Dates: start: 20200602, end: 20200602
  97. POSACONAZOLE [Concomitant]
     Active Substance: POSACONAZOLE
     Indication: PRODUCT USED FOR UNKNOWN INDICATION
     Dosage: 300 MG, QD (DAILY 9 AM)
     Route: 042
     Dates: start: 20200602, end: 20200602
  98. VASOPRESSIN. [Concomitant]
     Active Substance: VASOPRESSIN
     Indication: PRODUCT USED FOR UNKNOWN INDICATION
     Dosage: 4 OT
     Route: 041
  99. ANGIOTENSIN II [Concomitant]
     Active Substance: ANGIOTENSIN II
     Indication: PRODUCT USED FOR UNKNOWN INDICATION
     Dosage: 10 NG
     Route: 042
  100. MIDAZOLAM HYDROCHLORIDE. [Concomitant]
     Active Substance: MIDAZOLAM HYDROCHLORIDE
     Dosage: 4 MG, QD
     Route: 042
     Dates: start: 20200604, end: 20200604
  101. FENTANYL. [Concomitant]
     Active Substance: FENTANYL
     Indication: PRODUCT USED FOR UNKNOWN INDICATION
     Dosage: 50 UG
     Route: 041
     Dates: start: 20200604
  102. POTASSIUM CHLORIDE. [Concomitant]
     Active Substance: POTASSIUM CHLORIDE
     Dosage: 60 OT, QD
     Route: 048
     Dates: start: 20200603, end: 20200603
  103. MAGNESIUM [Concomitant]
     Active Substance: MAGNESIUM
     Indication: PRODUCT USED FOR UNKNOWN INDICATION
     Dosage: 2 G, QD
     Route: 042
     Dates: start: 20200522, end: 20200522
  104. MAGNESIUM [Concomitant]
     Active Substance: MAGNESIUM
     Dosage: 1 G, QD
     Route: 042
     Dates: start: 20200530, end: 20200530
  105. MAGNESII OXIDUM [Concomitant]
     Indication: PRODUCT USED FOR UNKNOWN INDICATION
     Dosage: 800 MG, QD
     Route: 048
     Dates: start: 20200526, end: 20200526
  106. POTASSIUM PHOSPHATE [Concomitant]
     Active Substance: POTASSIUM PHOSPHATE
     Dosage: 15 MMOL, QD
     Route: 042
     Dates: start: 20200530, end: 20200530
  107. POTASSIUM PHOSPHATE [Concomitant]
     Active Substance: POTASSIUM PHOSPHATE
     Dosage: 30 MMOL, QD
     Route: 042
     Dates: start: 20200601, end: 20200601
  108. MIDODRINE [Concomitant]
     Active Substance: MIDODRINE
     Dosage: 10 MG, QD
     Route: 048
     Dates: start: 20200603, end: 20200603

REACTIONS (22)
  - Haptoglobin decreased [Unknown]
  - Haemoglobin decreased [Unknown]
  - Platelet count decreased [Unknown]
  - Urinary sediment present [Unknown]
  - Multiple organ dysfunction syndrome [Fatal]
  - Haematocrit decreased [Unknown]
  - Prothrombin time prolonged [Unknown]
  - Acute lymphocytic leukaemia [Fatal]
  - Brain herniation [Unknown]
  - Brain stem syndrome [Unknown]
  - Areflexia [Unknown]
  - Blood albumin decreased [Unknown]
  - Oxygen saturation increased [Unknown]
  - Cardiac arrest [Unknown]
  - Haemolysis [Unknown]
  - Blood fibrinogen decreased [Unknown]
  - Pupil fixed [Unknown]
  - Glomerular filtration rate decreased [Unknown]
  - Blood bicarbonate decreased [Unknown]
  - Red blood cell count decreased [Unknown]
  - Red cell distribution width increased [Unknown]
  - Septic shock [Fatal]

NARRATIVE: CASE EVENT DATE: 20200605
